FAERS Safety Report 4845550-9 (Version None)
Quarter: 2005Q4

REPORT INFORMATION
  Report Type: 
  Country: None (occurrence: None)
  Receive Date: 20051201
  Receipt Date: 20051116
  Transmission Date: 20060501
  Serious: Yes (Hospitalization)
  Sender: FDA-Public Use
  Company Number: 2005BI019536

PATIENT
  Sex: Female

DRUGS (3)
  1. AVONEX [Suspect]
     Indication: MULTIPLE SCLEROSIS
     Dosage: 30 UG; QW;IM
     Route: 030
     Dates: start: 20010115
  2. COUMADIN [Concomitant]
  3. STEROIDS (HIGH DOSE) [Concomitant]

REACTIONS (4)
  - HIP ARTHROPLASTY [None]
  - HYPOCOAGULABLE STATE [None]
  - OSTEONECROSIS [None]
  - SHOULDER OPERATION [None]
